FAERS Safety Report 17392303 (Version 4)
Quarter: 2021Q2

REPORT INFORMATION
  Report Type: Spontaneous
  Country: CA (occurrence: CA)
  Receive Date: 20200207
  Receipt Date: 20210510
  Transmission Date: 20210716
  Serious: Yes (Other)
  Sender: FDA-Public Use
  Company Number: CA-ALLERGAN-2004912US

PATIENT
  Sex: Female

DRUGS (17)
  1. BETAHISTINE [Concomitant]
     Active Substance: BETAHISTINE
     Indication: MIGRAINE
     Dosage: 8 MG, QD
     Route: 065
  2. CYPROHEPTADINE. [Suspect]
     Active Substance: CYPROHEPTADINE
     Indication: MIGRAINE
     Dosage: 4 MG
     Route: 065
  3. ERYTHROMYCIN ESTOLATE. [Concomitant]
     Active Substance: ERYTHROMYCIN ESTOLATE
     Indication: MIGRAINE
     Dosage: 250 MG, QD
     Route: 065
  4. MEMANTINE HCL ? BP [Suspect]
     Active Substance: MEMANTINE
     Indication: MIGRAINE
     Dosage: 10 MG, QD
     Route: 065
  5. PANTOPRAZOLE [Concomitant]
     Active Substance: PANTOPRAZOLE
     Indication: MIGRAINE
     Dosage: 40 MG, QD
     Route: 065
  6. CYCLOMEN [Concomitant]
     Active Substance: DANAZOL
     Indication: MIGRAINE
     Dosage: 50 MG, QD
     Route: 065
  7. CANDESARTAN CILEXETIL. [Suspect]
     Active Substance: CANDESARTAN CILEXETIL
     Indication: MIGRAINE
     Dosage: 4 MG, QD
     Route: 048
  8. NOVO?FAMOTIDINE [Concomitant]
     Indication: MIGRAINE
     Dosage: 40 MG, QD
     Route: 065
  9. GABAPENTIN. [Concomitant]
     Active Substance: GABAPENTIN
     Indication: MIGRAINE
     Route: 065
  10. DEPO?MEDROL [Concomitant]
     Active Substance: METHYLPREDNISOLONE ACETATE
     Indication: MIGRAINE
     Route: 065
  11. LORAZEPAM. [Concomitant]
     Active Substance: LORAZEPAM
     Indication: PRODUCT USED FOR UNKNOWN INDICATION
     Dosage: 1 MG, QD
     Route: 065
  12. BOTULINUM TOXIN TYPE A UNK [Suspect]
     Active Substance: BOTULINUM TOXIN TYPE A
     Indication: MIGRAINE
     Dosage: UNK, SINGLE
     Route: 065
  13. ALMOTRIPTAN. [Suspect]
     Active Substance: ALMOTRIPTAN
     Indication: MIGRAINE
     Dosage: 12.5 MG, QD
     Route: 065
  14. RIZATRIPTAN BENZOATE. [Suspect]
     Active Substance: RIZATRIPTAN BENZOATE
     Indication: MIGRAINE
     Dosage: 10 MG, QD
     Route: 065
  15. PMS?AZITHROMYCIN [Concomitant]
     Active Substance: AZITHROMYCIN ANHYDROUS
     Indication: MIGRAINE
     Dosage: 250 MG, QD
     Route: 065
  16. MOMETASONE [Concomitant]
     Active Substance: MOMETASONE
     Indication: PRODUCT USED FOR UNKNOWN INDICATION
     Dosage: 50 ?G, QD
     Route: 065
  17. PURG ODAN [Concomitant]
     Active Substance: ANHYDROUS CITRIC ACID\MAGNESIUM OXIDE\SODIUM PICOSULFATE
     Indication: MIGRAINE
     Route: 065

REACTIONS (7)
  - Periorbital swelling [Recovered/Resolved]
  - Drug intolerance [Recovered/Resolved]
  - Drug ineffective for unapproved indication [Unknown]
  - Muscle spasms [Recovered/Resolved]
  - Product use in unapproved indication [Unknown]
  - Anaphylactic reaction [Recovered/Resolved]
  - Periorbital oedema [Recovered/Resolved]
